FAERS Safety Report 8886573 (Version 1)
Quarter: 2012Q4

REPORT INFORMATION
  Report Type: 
  Country: IT (occurrence: IT)
  Receive Date: 20121105
  Receipt Date: 20121105
  Transmission Date: 20130627
  Serious: Yes (Hospitalization)
  Sender: FDA-Public Use
  Company Number: IT-ELI_LILLY_AND_COMPANY-IT201210007190

PATIENT
  Age: 88 Year
  Sex: Male

DRUGS (7)
  1. HUMALOG 50% LISPRO, 50% NPL [Suspect]
     Dosage: 12 IU, qd
     Route: 058
     Dates: start: 20110725, end: 20120924
  2. HUMALOG LISPRO [Suspect]
     Dosage: 14 IU, qd
     Route: 058
     Dates: start: 20120725, end: 20120924
  3. PRAVASELECT [Concomitant]
     Dosage: 40 mg, unknown
     Route: 048
  4. COUMADIN [Concomitant]
     Dosage: 5 mg, unknown
     Route: 048
  5. FUROSEMIDE [Concomitant]
     Dosage: 50 mg, unknown
     Route: 048
  6. FINASTERIDE [Concomitant]
     Dosage: 5 mg, unknown
     Route: 048
  7. RAMIPRIL [Concomitant]
     Dosage: 5 mg, unknown
     Route: 048

REACTIONS (3)
  - Fall [Recovering/Resolving]
  - Aphasia [Recovering/Resolving]
  - Hypoglycaemia [Recovering/Resolving]
